FAERS Safety Report 6697733-3 (Version None)
Quarter: 2010Q2

REPORT INFORMATION
  Report Type: 
  Country: None (occurrence: None)
  Receive Date: 20100423
  Receipt Date: 20100419
  Transmission Date: 20101027
  Serious: Yes (Other)
  Sender: FDA-Public Use
  Company Number: 2010SP017083

PATIENT
  Age: 48 Year
  Sex: Female

DRUGS (7)
  1. SAPHRIS [Suspect]
     Indication: BIPOLAR DISORDER
     Dosage: 10 MG;BID;SL
     Route: 060
     Dates: start: 20100219, end: 20100305
  2. INVEGA [Concomitant]
  3. LAMICTAL [Concomitant]
  4. TRAZODONE HCL [Concomitant]
  5. METFORMIN [Concomitant]
  6. GLYBURIDE [Concomitant]
  7. ENALAPRIL MALEATE [Concomitant]

REACTIONS (7)
  - CONDITION AGGRAVATED [None]
  - DEPRESSED MOOD [None]
  - DIZZINESS [None]
  - FATIGUE [None]
  - PARANOIA [None]
  - SUICIDAL IDEATION [None]
  - VOMITING [None]
